FAERS Safety Report 7648390-0 (Version None)
Quarter: 2011Q3

REPORT INFORMATION
  Report Type: 
  Country: None (occurrence: None)
  Receive Date: 20110801
  Receipt Date: 20110721
  Transmission Date: 20111222
  Serious: Yes (Hospitalization)
  Sender: FDA-Public Use
  Company Number: US-ASTRAZENECA-2011SE03530

PATIENT
  Age: 55 Year
  Sex: Male

DRUGS (2)
  1. NEXIUM [Suspect]
     Indication: GASTROOESOPHAGEAL REFLUX DISEASE
     Route: 048
  2. PRILOSEC [Suspect]
     Route: 048

REACTIONS (8)
  - GASTROOESOPHAGEAL REFLUX DISEASE [None]
  - OCULAR HYPERAEMIA [None]
  - DRUG INEFFECTIVE [None]
  - POLYP [None]
  - ADVERSE DRUG REACTION [None]
  - HIATUS HERNIA [None]
  - CHOKING [None]
  - DRUG DOSE OMISSION [None]
